FAERS Safety Report 24432955 (Version 1)
Quarter: 2024Q4

REPORT INFORMATION
  Report Type: Spontaneous
  Country: US (occurrence: US)
  Receive Date: 20241014
  Receipt Date: 20241014
  Transmission Date: 20250114
  Serious: No
  Sender: TORRENT PHARMA INC.
  Company Number: US-TORRENT-00013793

PATIENT
  Age: 24 Year
  Sex: Female

DRUGS (1)
  1. DICHLORPHENAMIDE [Suspect]
     Active Substance: DICHLORPHENAMIDE
     Indication: Paralysis
     Dosage: 50 MG AT 2 TABLETS, 1X/DAY
     Route: 065

REACTIONS (1)
  - Treatment failure [Unknown]
